FAERS Safety Report 4867833-9 (Version None)
Quarter: 2005Q4

REPORT INFORMATION
  Report Type: 
  Country: None (occurrence: None)
  Receive Date: 20051228
  Receipt Date: 20051221
  Transmission Date: 20060501
  Serious: Yes (Death, Disabling)
  Sender: FDA-Public Use
  Company Number: US-MERCK-0512USA03650

PATIENT
  Sex: Male

DRUGS (1)
  1. VIOXX [Suspect]
     Route: 048
     Dates: start: 20021101, end: 20031004

REACTIONS (2)
  - CEREBROVASCULAR ACCIDENT [None]
  - PULMONARY THROMBOSIS [None]
